FAERS Safety Report 23703918 (Version 1)
Quarter: 2024Q2

REPORT INFORMATION
  Report Type: Spontaneous
  Country: US (occurrence: US)
  Receive Date: 20240403
  Receipt Date: 20240403
  Transmission Date: 20240715
  Serious: No
  Sender: FDA-Public Use
  Company Number: US-BoehringerIngelheim-2024-BI-019808

PATIENT
  Sex: Female

DRUGS (1)
  1. JARDIANCE [Suspect]
     Active Substance: EMPAGLIFLOZIN
     Indication: Type 2 diabetes mellitus
     Dates: start: 2020

REACTIONS (4)
  - Vertigo [Unknown]
  - Tinnitus [Unknown]
  - Dizziness [Unknown]
  - COVID-19 [Unknown]

NARRATIVE: CASE EVENT DATE: 20240301
